FAERS Safety Report 6155387-9 (Version None)
Quarter: 2009Q2

REPORT INFORMATION
  Report Type: 
  Country: None (occurrence: None)
  Receive Date: 20090415
  Receipt Date: 20090408
  Transmission Date: 20091009
  Serious: Yes (Hospitalization)
  Sender: FDA-Public Use
  Company Number: JP-JNJFOC-20090306913

PATIENT
  Age: 78 Year
  Sex: Female

DRUGS (6)
  1. CRAVIT [Suspect]
     Route: 048
  2. CRAVIT [Suspect]
     Indication: DRUG USE FOR UNKNOWN INDICATION
     Route: 048
  3. MUCODYNE [Suspect]
     Indication: DRUG USE FOR UNKNOWN INDICATION
     Route: 048
  4. ALPRAZOLAM [Concomitant]
     Route: 065
  5. AMOBAN [Concomitant]
     Route: 065
  6. CLARITH [Concomitant]
     Route: 065

REACTIONS (1)
  - EOSINOPHILIC PNEUMONIA [None]
